FAERS Safety Report 7382028-5 (Version None)
Quarter: 2011Q1

REPORT INFORMATION
  Report Type: 
  Country: None (occurrence: None)
  Receive Date: 20110329
  Receipt Date: 20110323
  Transmission Date: 20110831
  Serious: Yes (Other)
  Sender: FDA-Public Use
  Company Number: FR-PFIZER INC-2011021402

PATIENT
  Age: 69 Year
  Sex: Male

DRUGS (6)
  1. ATACAND [Suspect]
     Indication: HYPERTENSION
     Dosage: 1 DF, 1X/DAY
     Route: 048
     Dates: start: 20070101
  2. TEMERIT [Suspect]
     Indication: HYPERTENSION
     Dosage: 5 MG, 1X/DAY
     Route: 048
     Dates: start: 20070101
  3. DIGOXIN [Suspect]
     Indication: ARRHYTHMIA
     Dosage: 0.25 MG, UNK
     Route: 048
     Dates: start: 20060101
  4. INSPRA [Suspect]
     Dosage: 50 MG, 1X/DAY
     Route: 048
     Dates: start: 20090701
  5. PREVISCAN [Suspect]
     Dosage: 20 MG, 1X/DAY
     Route: 048
     Dates: start: 20060101
  6. PANDEMRIX [Suspect]
     Indication: ANTIVIRAL PROPHYLAXIS
     Dosage: 1 DF, SINGLE
     Route: 030
     Dates: start: 20091201

REACTIONS (3)
  - TESTICULAR SEMINOMA (PURE) [None]
  - TESTICULAR SWELLING [None]
  - TESTICULAR MASS [None]
